FAERS Safety Report 8561170-7 (Version None)
Quarter: 2012Q3

REPORT INFORMATION
  Report Type: 
  Country: None (occurrence: None)
  Receive Date: 20120802
  Receipt Date: 20120720
  Transmission Date: 20120928
  Serious: Yes (Hospitalization, Other)
  Sender: FDA-Public Use
  Company Number: IE-ACTELION-A-CH2011-49109

PATIENT
  Age: 54 Year
  Sex: Female
  Weight: 60 kg

DRUGS (9)
  1. ZOFRAN [Concomitant]
  2. ACTIQ [Concomitant]
  3. ZOPICLONE [Concomitant]
  4. MIRTAZAPINE [Concomitant]
  5. TRACLEER [Suspect]
     Indication: DIGITAL ULCER
     Dosage: 62.5 MG, UNK
     Route: 048
     Dates: start: 20090101
  6. IMODIUM [Concomitant]
  7. MOTILIUM [Concomitant]
  8. LANSOPRAZOLE [Concomitant]
  9. OXYCODONE HCL [Concomitant]

REACTIONS (3)
  - SCLERODERMA RENAL CRISIS [None]
  - SURGERY [None]
  - INTESTINAL OBSTRUCTION [None]
